FAERS Safety Report 19467051 (Version 2)
Quarter: 2021Q3

REPORT INFORMATION
  Report Type: Report from Study
  Country: US (occurrence: US)
  Receive Date: 20210628
  Receipt Date: 20210714
  Transmission Date: 20211014
  Serious: Yes (Death, Hospitalization)
  Sender: FDA-Public Use
  Company Number: US-UCBSA-2021030065

PATIENT
  Age: 72 Year
  Sex: Male

DRUGS (1)
  1. LACOSAMIDE. [Suspect]
     Active Substance: LACOSAMIDE
     Indication: SEIZURE
     Dosage: 100 MILLIGRAM, 2X/DAY (BID)
     Dates: end: 20210614

REACTIONS (2)
  - Death [Fatal]
  - Abnormal behaviour [Unknown]

NARRATIVE: CASE EVENT DATE: 202106
